FAERS Safety Report 9789562 (Version 4)
Quarter: 2014Q1

REPORT INFORMATION
  Report Type: Report from Study
  Country: CA (occurrence: CA)
  Receive Date: 20131231
  Receipt Date: 20140108
  Transmission Date: 20141002
  Serious: Yes (Other)
  Sender: FDA-Public Use
  Company Number: CA-ROCHE-1228290

PATIENT
  Age: 46 Year
  Sex: Female
  Weight: 56.7 kg

DRUGS (7)
  1. RITUXAN [Suspect]
     Indication: RHEUMATOID ARTHRITIS
     Dosage: LAST DOSE OF RITUXAN: 04/JUL/2013
     Route: 042
     Dates: start: 20100915
  2. DIPHENHYDRAMINE HCL [Concomitant]
     Indication: PREMEDICATION
     Route: 048
     Dates: start: 20100915
  3. ACETAMINOPHEN [Concomitant]
     Indication: PREMEDICATION
     Route: 048
     Dates: start: 20100915
  4. METHYLPREDNISOLONE [Concomitant]
     Indication: PREMEDICATION
     Route: 042
     Dates: start: 20100915
  5. METHOTREXATE [Concomitant]
  6. MELOXICAM [Concomitant]
  7. FOLIC ACID [Concomitant]

REACTIONS (3)
  - Limb operation [Unknown]
  - Hand fracture [Unknown]
  - Medical device removal [Unknown]
